FAERS Safety Report 6522057-4 (Version None)
Quarter: 2009Q4

REPORT INFORMATION
  Report Type: 
  Country: None (occurrence: None)
  Receive Date: 20091230
  Receipt Date: 20091228
  Transmission Date: 20100525
  Serious: Yes (Death)
  Sender: FDA-Public Use
  Company Number: US-KINGPHARMUSA00001-K200901610

PATIENT
  Age: 14 Year
  Sex: Male

DRUGS (3)
  1. SKELAXIN [Suspect]
     Indication: DRUG ABUSE
     Dosage: UNK
     Route: 048
  2. CITALOPRAM HYDROBROMIDE [Suspect]
     Indication: DRUG ABUSE
     Dosage: UNK
     Route: 048
  3. MELOXICAM [Suspect]
     Indication: DRUG ABUSE
     Dosage: UNK
     Route: 048

REACTIONS (1)
  - DRUG ABUSE [None]
